FAERS Safety Report 10245126 (Version 1)
Quarter: 2014Q2

REPORT INFORMATION
  Report Type: Spontaneous
  Country: US (occurrence: US)
  Receive Date: 20140618
  Receipt Date: 20140618
  Transmission Date: 20141212
  Serious: Yes (Other)
  Sender: FDA-Public Use
  Company Number: US-PFIZER INC-2014167799

PATIENT
  Age: 76 Year
  Sex: Female
  Weight: 86.17 kg

DRUGS (1)
  1. CELEBREX [Suspect]
     Indication: FIBROMYALGIA
     Dosage: 200 MG, 1X/DAY
     Route: 048
     Dates: end: 201402

REACTIONS (3)
  - Choking [Unknown]
  - Pharyngeal oedema [Unknown]
  - Pruritus [Not Recovered/Not Resolved]
